FAERS Safety Report 11744575 (Version 1)
Quarter: 2015Q4

REPORT INFORMATION
  Report Type: Spontaneous
  Country: US (occurrence: US)
  Receive Date: 20151116
  Receipt Date: 20151116
  Transmission Date: 20160304
  Serious: No
  Sender: FDA-Public Use
  Company Number: US-PFIZER INC-2015374326

PATIENT
  Age: 72 Year

DRUGS (1)
  1. SUTENT [Suspect]
     Active Substance: SUNITINIB MALATE
     Indication: RENAL CANCER
     Dosage: 25 MG, 1 CAPSULE, CYCLIC (2 WEEKS ON 1 WEEK OFF)

REACTIONS (2)
  - Renal cancer [Unknown]
  - Disease progression [Unknown]
